FAERS Safety Report 24242107 (Version 1)
Quarter: 2024Q3

REPORT INFORMATION
  Report Type: Spontaneous
  Country: IT (occurrence: IT)
  Receive Date: 20240823
  Receipt Date: 20240823
  Transmission Date: 20241017
  Serious: Yes (Other)
  Sender: BAUSCH AND LOMB
  Company Number: IT-MLMSERVICE-20240814-PI161781-00117-1

PATIENT
  Age: 6 Year
  Sex: Male

DRUGS (5)
  1. DEXAMETHASONE [Suspect]
     Active Substance: DEXAMETHASONE
     Indication: Acute lymphocytic leukaemia
     Dosage: DAY 1 TO DAY 21
     Route: 065
     Dates: start: 202210, end: 202210
  2. PREDNISOLONE [Suspect]
     Active Substance: PREDNISOLONE
     Indication: Acute lymphocytic leukaemia
     Route: 065
     Dates: start: 202202, end: 2022
  3. PEG/L-ASPARAGINASE [Suspect]
     Active Substance: PEGASPARGASE
     Indication: Acute lymphocytic leukaemia
     Dosage: 2500 IU/M2 (DAY 8)
     Route: 065
     Dates: start: 202210, end: 2022
  4. VINCRISTINE [Suspect]
     Active Substance: VINCRISTINE
     Indication: Acute lymphocytic leukaemia
     Dosage: DAYS 8-15
     Route: 065
     Dates: start: 202210, end: 2022
  5. DOXORUBICIN [Suspect]
     Active Substance: DOXORUBICIN
     Indication: Acute lymphocytic leukaemia
     Dosage: DAY 22-29
     Route: 065
     Dates: start: 202210, end: 2022

REACTIONS (2)
  - Posterior reversible encephalopathy syndrome [Recovered/Resolved]
  - Herpes zoster meningoencephalitis [Unknown]

NARRATIVE: CASE EVENT DATE: 20220101
